FAERS Safety Report 5080079-7 (Version None)
Quarter: 2006Q3

REPORT INFORMATION
  Report Type: 
  Country: None (occurrence: None)
  Receive Date: 20060810
  Receipt Date: 20060801
  Transmission Date: 20061208
  Serious: Yes (Disabling, Other)
  Sender: FDA-Public Use
  Company Number: 2006073920

PATIENT
  Age: 76 Year
  Sex: Female

DRUGS (1)
  1. LIPITOR [Suspect]
     Indication: DEMENTIA
     Dosage: 10 MG (10 MG, 1 IN 1 D),
     Dates: start: 19980801

REACTIONS (2)
  - AMNESIA [None]
  - DEMENTIA [None]
